FAERS Safety Report 8578491-4 (Version None)
Quarter: 2012Q3

REPORT INFORMATION
  Report Type: 
  Country: None (occurrence: None)
  Receive Date: 20120808
  Receipt Date: 20120730
  Transmission Date: 20120928
  Serious: Yes (Hospitalization, Other)
  Sender: FDA-Public Use
  Company Number: FR-BAYER-2012-060903

PATIENT
  Age: 50 Year
  Sex: Female
  Weight: 80 kg

DRUGS (6)
  1. MIRENA [Suspect]
     Indication: CONTRACEPTION
     Dosage: UNK
     Dates: start: 20050301
  2. ATARAX [Concomitant]
  3. SINGULAIR [Concomitant]
  4. SERETIDE [Concomitant]
  5. ESOMEPRAZOLE [Concomitant]
  6. THEOPHYLLINE [Concomitant]

REACTIONS (3)
  - AMENORRHOEA [None]
  - HEMIPLEGIA [None]
  - CEREBROVASCULAR ACCIDENT [None]
